FAERS Safety Report 15844678 (Version 3)
Quarter: 2019Q1

REPORT INFORMATION
  Report Type: Spontaneous
  Country: BE (occurrence: BE)
  Receive Date: 20190118
  Receipt Date: 20190125
  Transmission Date: 20190417
  Serious: Yes (Life-Threatening, Hospitalization, Other)
  Sender: FDA-Public Use
  Company Number: BE-PFIZER INC-2019023068

PATIENT
  Age: 57 Year
  Sex: Female

DRUGS (12)
  1. TARADYL [Concomitant]
     Active Substance: KETOROLAC\KETOROLAC TROMETHAMINE
     Indication: JOINT ARTHROPLASTY
  2. DALACIN C [Suspect]
     Active Substance: CLINDAMYCIN PHOSPHATE
     Indication: ANAESTHESIA
     Dosage: 600 MG, SINGLE
     Route: 042
  3. MIDAZOLAM [Concomitant]
     Active Substance: MIDAZOLAM HYDROCHLORIDE
     Indication: JOINT ARTHROPLASTY
  4. SUFENTANIL CITRATE. [Concomitant]
     Active Substance: SUFENTANIL CITRATE
     Indication: JOINT ARTHROPLASTY
  5. DALACIN C [Suspect]
     Active Substance: CLINDAMYCIN PHOSPHATE
     Indication: JOINT ARTHROPLASTY
  6. CITANEST [PRILOCAINE HYDROCHLORIDE] [Concomitant]
     Indication: ANAESTHESIA
     Dosage: 400 MG, SINGLE
     Route: 042
  7. CITANEST [PRILOCAINE HYDROCHLORIDE] [Concomitant]
     Indication: JOINT ARTHROPLASTY
  8. SODIUM CHLORIDE. [Concomitant]
     Active Substance: SODIUM CHLORIDE
     Indication: JOINT ARTHROPLASTY
  9. SODIUM CHLORIDE. [Concomitant]
     Active Substance: SODIUM CHLORIDE
     Indication: ANAESTHESIA
     Dosage: 50 ML, SINGLE
     Route: 042
  10. SUFENTANIL CITRATE. [Concomitant]
     Active Substance: SUFENTANIL CITRATE
     Indication: ANAESTHESIA
     Dosage: 5 MG, SINGLE
     Route: 042
  11. MIDAZOLAM [Concomitant]
     Active Substance: MIDAZOLAM HYDROCHLORIDE
     Indication: ANAESTHESIA
     Dosage: 1 MG, SINGLE
     Route: 042
  12. TARADYL [Concomitant]
     Active Substance: KETOROLAC\KETOROLAC TROMETHAMINE
     Indication: ANAESTHESIA
     Dosage: 30 MG, SINGLE
     Route: 042

REACTIONS (4)
  - Vomiting [Recovered/Resolved]
  - Type I hypersensitivity [Recovered/Resolved]
  - Anaphylactic reaction [Recovered/Resolved]
  - Oxygen saturation decreased [Recovered/Resolved]
